FAERS Safety Report 18891417 (Version 1)
Quarter: 2021Q1

REPORT INFORMATION
  Report Type: Spontaneous
  Country: AU (occurrence: AU)
  Receive Date: 20210215
  Receipt Date: 20210215
  Transmission Date: 20210420
  Serious: Yes (Death, Hospitalization, Other)
  Sender: FDA-Public Use
  Company Number: AU-EPICPHARMA-AU-2021EPCLIT00126

PATIENT
  Age: 60 Year
  Sex: Male

DRUGS (7)
  1. DOCUSATE [Interacting]
     Active Substance: DOCUSATE
     Indication: CONSTIPATION
     Route: 065
  2. MONOSODIUM PHOSPHATE [Interacting]
     Active Substance: SODIUM PHOSPHATE, MONOBASIC
     Indication: CONSTIPATION
     Route: 065
  3. MACROGOL [Interacting]
     Active Substance: POLYETHYLENE GLYCOLS
     Indication: CONSTIPATION
     Route: 065
  4. SENNA LEAF [Interacting]
     Active Substance: SENNA LEAF
     Indication: CONSTIPATION
     Route: 065
  5. BENZTROPINE MESYLATE. [Suspect]
     Active Substance: BENZTROPINE MESYLATE
     Route: 065
  6. BENZTROPINE MESYLATE. [Suspect]
     Active Substance: BENZTROPINE MESYLATE
     Indication: PRODUCT USED FOR UNKNOWN INDICATION
     Route: 065
  7. OLANZAPINE. [Suspect]
     Active Substance: OLANZAPINE
     Indication: PRODUCT USED FOR UNKNOWN INDICATION
     Route: 065

REACTIONS (7)
  - Pneumonia aspiration [Unknown]
  - Drug interaction [Unknown]
  - Constipation [Unknown]
  - Acute kidney injury [Fatal]
  - Faecaloma [Unknown]
  - Multiple organ dysfunction syndrome [Fatal]
  - Small intestinal obstruction [Unknown]
